FAERS Safety Report 8617899-5 (Version None)
Quarter: 2012Q3

REPORT INFORMATION
  Report Type: 
  Country: None (occurrence: None)
  Receive Date: 20120824
  Receipt Date: 20120327
  Transmission Date: 20120928
  Serious: No
  Sender: FDA-Public Use
  Company Number: US-ASTRAZENECA-2012SE20357

PATIENT
  Sex: Female

DRUGS (2)
  1. DULERA [Suspect]
     Route: 055
     Dates: start: 20110101, end: 20110101
  2. SYMBICORT [Suspect]
     Dosage: DAILY
     Route: 055

REACTIONS (2)
  - HEART RATE INCREASED [None]
  - TREMOR [None]
